FAERS Safety Report 8070607-1 (Version None)
Quarter: 2012Q1

REPORT INFORMATION
  Report Type: 
  Country: None (occurrence: None)
  Receive Date: 20120125
  Receipt Date: 20120119
  Transmission Date: 20120608
  Serious: Yes (Death)
  Sender: FDA-Public Use
  Company Number: PHHY2012NL000671

PATIENT
  Sex: Male

DRUGS (12)
  1. ACETYLCYSTEINE [Concomitant]
     Dosage: 200 MG, QID
  2. D-MANNOSE [Concomitant]
     Dosage: 500 MG, QD
  3. BUMETANIDE [Concomitant]
     Dosage: 1 MG, QD
  4. DOMPERIDONE [Concomitant]
     Dosage: 60 MG, PRN
  5. ZOMETA [Suspect]
     Dosage: 4 MG/5 ML, ONCE PER 28 DAYS
     Route: 042
     Dates: start: 20111201
  6. ZOMETA [Suspect]
     Dosage: 4 MG/5 ML, ONCE PER 28 DAYS
     Route: 042
     Dates: start: 20120104
  7. ZOMETA [Suspect]
     Indication: PROSTATE CANCER METASTATIC
     Dosage: 4MG/5ML, ONCE PER 28 DAYS
     Route: 042
  8. AMOXICILLIN [Concomitant]
  9. OMEPRAZOLE [Concomitant]
     Dosage: 20 MG, BID
  10. ZOMETA [Suspect]
     Dosage: 4 MG/5 ML, ONCE PER 28 DAYS
     Route: 042
     Dates: start: 20110103
  11. ACETAMINOPHEN [Concomitant]
     Dosage: 1000 MG, QID
  12. FENTANYL [Concomitant]
     Dosage: 150 MG, ONCE PER 3 DAYS

REACTIONS (6)
  - MALAISE [None]
  - NEOPLASM PROGRESSION [None]
  - NEOPLASM MALIGNANT [None]
  - GENERAL PHYSICAL HEALTH DETERIORATION [None]
  - NUTRITIONAL CONDITION ABNORMAL [None]
  - RESPIRATION ABNORMAL [None]
